FAERS Safety Report 6758314-6 (Version None)
Quarter: 2010Q2

REPORT INFORMATION
  Report Type: 
  Country: None (occurrence: None)
  Receive Date: 20100524
  Receipt Date: 20100408
  Transmission Date: 20101027
  Serious: No
  Sender: FDA-Public Use
  Company Number: 009962

PATIENT
  Sex: Male
  Weight: 97.7 kg

DRUGS (4)
  1. CIMZIA [Suspect]
     Indication: CROHN'S DISEASE
     Dosage: SUBCUTANEOUS
     Route: 058
     Dates: start: 20090101
  2. AZOPT [Concomitant]
  3. MESALAMINE [Concomitant]
  4. PAXIL [Concomitant]

REACTIONS (1)
  - DIZZINESS [None]
